FAERS Safety Report 12399317 (Version 2)
Quarter: 2016Q2

REPORT INFORMATION
  Report Type: Report from Study
  Country: JP (occurrence: JP)
  Receive Date: 20160524
  Receipt Date: 20160620
  Transmission Date: 20160815
  Serious: Yes (Other)
  Sender: FDA-Public Use
  Company Number: JP-BRISTOL-MYERS SQUIBB COMPANY-BMS-2016-039677

PATIENT
  Age: 71 Year
  Sex: Male
  Weight: 65 kg

DRUGS (11)
  1. APIXABAN [Suspect]
     Active Substance: APIXABAN
     Dosage: 5 MG, BID
     Route: 048
     Dates: start: 20140219, end: 20140309
  2. ITOROL [Concomitant]
     Active Substance: ISOSORBIDE MONONITRATE
     Indication: PRINZMETAL ANGINA
     Dosage: 40 MG, QD
     Route: 048
  3. REZALTAS [Concomitant]
     Active Substance: AZELNIDIPINE\OLMESARTAN MEDOXOMIL
     Indication: HYPERTENSION
     Dosage: 1 TAB, QD
     Route: 048
     Dates: start: 20150128
  4. OLMETEC [Concomitant]
     Active Substance: OLMESARTAN MEDOXOMIL
     Indication: HYPERTENSION
     Dosage: 40 MG, QD
     Route: 048
     Dates: start: 20150127
  5. SIGMART [Concomitant]
     Active Substance: NICORANDIL
     Indication: PRINZMETAL ANGINA
     Dosage: 15 MG, QD
     Route: 048
  6. APIXABAN [Suspect]
     Active Substance: APIXABAN
     Indication: CEREBROVASCULAR ACCIDENT PROPHYLAXIS
     Dosage: 5 MG, BID
     Route: 048
     Dates: start: 20140215, end: 20140218
  7. OLMETEC [Concomitant]
     Active Substance: OLMESARTAN MEDOXOMIL
     Dosage: 20 MG, QD
     Route: 048
     Dates: start: 20150128
  8. APIXABAN [Suspect]
     Active Substance: APIXABAN
     Dosage: 5 MG, BID
     Route: 048
     Dates: start: 20140310, end: 20140414
  9. ADALAT [Concomitant]
     Active Substance: NIFEDIPINE
     Indication: PRINZMETAL ANGINA
     Dosage: 40 MG, QD
     Route: 048
  10. APIXABAN [Suspect]
     Active Substance: APIXABAN
     Dosage: 5 MG, BID
     Route: 048
     Dates: start: 20140418
  11. NEUQUINON [Concomitant]
     Active Substance: UBIDECARENONE
     Indication: CARDIAC FAILURE
     Dosage: 20 MG, QD
     Route: 048

REACTIONS (5)
  - Cardiac failure [Recovered/Resolved]
  - Varicose vein operation [Unknown]
  - Respiratory tract infection [Recovered/Resolved]
  - Spinal operation [Unknown]
  - Haemorrhoidal haemorrhage [Recovered/Resolved]

NARRATIVE: CASE EVENT DATE: 20140415
